FAERS Safety Report 6486632-8 (Version None)
Quarter: 2009Q4

REPORT INFORMATION
  Report Type: 
  Country: None (occurrence: None)
  Receive Date: 20091210
  Receipt Date: 20090901
  Transmission Date: 20100525
  Serious: No
  Sender: FDA-Public Use
  Company Number: US-AMGEN-KDL358708

PATIENT
  Sex: Female
  Weight: 71.7 kg

DRUGS (12)
  1. ENBREL [Suspect]
     Indication: RHEUMATOID ARTHRITIS
     Route: 058
     Dates: start: 20090606, end: 20090804
  2. METHOTREXATE [Concomitant]
     Dates: start: 20090301
  3. SYNTHROID [Concomitant]
  4. INDERAL [Concomitant]
  5. MEDROL [Concomitant]
  6. TYLENOL W/ CODEINE NO. 2 [Concomitant]
  7. MAXALT [Concomitant]
  8. EXCEDRIN (MIGRAINE) [Concomitant]
  9. LEUCOVORIN CALCIUM [Concomitant]
  10. FOSAMAX [Concomitant]
  11. PRILOSEC [Concomitant]
  12. NORCO [Concomitant]

REACTIONS (2)
  - DENTAL CARIES [None]
  - TOOTH ABSCESS [None]
